FAERS Safety Report 6021675-X (Version None)
Quarter: 2008Q4

REPORT INFORMATION
  Report Type: 
  Country: None (occurrence: None)
  Receive Date: 20081229
  Receipt Date: 20081222
  Transmission Date: 20090506
  Serious: Yes (Hospitalization, Disabling, Other)
  Sender: FDA-Public Use
  Company Number: US-ROCHE-528598

PATIENT
  Sex: Female
  Weight: 77.1 kg

DRUGS (10)
  1. ACCUTANE [Suspect]
     Route: 065
     Dates: start: 20031105, end: 20031204
  2. ACCUTANE [Suspect]
     Route: 065
     Dates: start: 20031205, end: 20040303
  3. ACCUTANE [Suspect]
     Route: 065
     Dates: start: 20040305, end: 20040404
  4. AMNESTEEM [Suspect]
     Route: 065
     Dates: start: 20060317, end: 20060516
  5. AMNESTEEM [Suspect]
     Route: 065
     Dates: start: 20060517, end: 20060615
  6. AMNESTEEM [Suspect]
     Route: 065
     Dates: start: 20060626, end: 20060725
  7. AMNESTEEM [Suspect]
     Route: 065
     Dates: start: 20060802, end: 20060831
  8. ESTRADIOL [Concomitant]
     Dates: start: 20020101
  9. METROGEL [Concomitant]
  10. TRAZODONE [Concomitant]
     Indication: INSOMNIA
     Dates: start: 20020101

REACTIONS (17)
  - BLOOD CHOLESTEROL INCREASED [None]
  - BLOOD TRIGLYCERIDES INCREASED [None]
  - CHOLELITHIASIS [None]
  - CLOSTRIDIUM DIFFICILE COLITIS [None]
  - COLITIS [None]
  - COLITIS ULCERATIVE [None]
  - CROHN'S DISEASE [None]
  - DEHYDRATION [None]
  - ECCHYMOSIS [None]
  - EROSIVE OESOPHAGITIS [None]
  - GASTRITIS [None]
  - GASTROOESOPHAGEAL REFLUX DISEASE [None]
  - HYPOKALAEMIA [None]
  - INFLAMMATORY BOWEL DISEASE [None]
  - IRRITABLE BOWEL SYNDROME [None]
  - LIPOMA [None]
  - STRESS [None]
